FAERS Safety Report 20768929 (Version 1)
Quarter: 2022Q2

REPORT INFORMATION
  Report Type: Spontaneous
  Country: US (occurrence: US)
  Receive Date: 20220429
  Receipt Date: 20220429
  Transmission Date: 20220721
  Serious: No
  Sender: FDA-Public Use
  Company Number: US-APOTEX-2022AP005187

PATIENT
  Age: 52 Year
  Sex: Female

DRUGS (4)
  1. IMIQUIMOD [Suspect]
     Active Substance: IMIQUIMOD
     Indication: Melanoma recurrent
     Dosage: UNK, Q.O.D.
     Route: 061
     Dates: start: 201610
  2. IMIQUIMOD [Suspect]
     Active Substance: IMIQUIMOD
     Indication: Lip and/or oral cavity cancer
     Dosage: UNK (1 EVERY 3 DAYS)
     Route: 061
  3. PEMBROLIZUMAB [Suspect]
     Active Substance: PEMBROLIZUMAB
     Indication: Melanoma recurrent
     Dosage: 2 MILLIGRAM/KILOGRAM, Q.3W
     Route: 065
     Dates: start: 2016
  4. PEMBROLIZUMAB [Suspect]
     Active Substance: PEMBROLIZUMAB
     Indication: Lip and/or oral cavity cancer

REACTIONS (10)
  - Gingival bleeding [Recovered/Resolved]
  - Constipation [Unknown]
  - Gingival discomfort [Unknown]
  - Dysgeusia [Unknown]
  - Stomatitis [Unknown]
  - Oral pain [Recovered/Resolved]
  - Tooth infection [Unknown]
  - Fatigue [Unknown]
  - Arthralgia [Unknown]
  - Influenza like illness [Unknown]

NARRATIVE: CASE EVENT DATE: 20160101
